FAERS Safety Report 8060866-3 (Version None)
Quarter: 2012Q1

REPORT INFORMATION
  Report Type: 
  Country: None (occurrence: None)
  Receive Date: 20120120
  Receipt Date: 20110228
  Transmission Date: 20120608
  Serious: No
  Sender: FDA-Public Use
  Company Number: US-ALLERGAN-1102847US

PATIENT
  Age: 79 Year
  Sex: Male

DRUGS (2)
  1. SYSTANE [Concomitant]
     Indication: DRY EYE
     Dosage: UNK
     Route: 047
  2. RESTASIS [Suspect]
     Indication: DRY EYE
     Dosage: 1 GTT, BID
     Route: 047
     Dates: start: 20110224, end: 20110228

REACTIONS (4)
  - ERYTHEMA OF EYELID [None]
  - EYELIDS PRURITUS [None]
  - FOREIGN BODY SENSATION IN EYES [None]
  - BURNING SENSATION [None]
